FAERS Safety Report 7610605-2 (Version None)
Quarter: 2011Q3

REPORT INFORMATION
  Report Type: 
  Country: None (occurrence: None)
  Receive Date: 20110715
  Receipt Date: 20110607
  Transmission Date: 20111222
  Serious: Yes (Disabling)
  Sender: FDA-Public Use
  Company Number: GB-SANOFI-AVENTIS-2011SA037084

PATIENT
  Age: 35 Year
  Sex: Female
  Weight: 68 kg

DRUGS (4)
  1. DRISDOL [Suspect]
     Indication: VITAMIN D DEFICIENCY
     Dosage: DOSE: FOR 3 WEEKS
     Route: 048
     Dates: start: 20110606
  2. DRISDOL [Suspect]
     Dosage: DOSE: FOR 3 WEEKS
     Route: 048
     Dates: start: 20110606
  3. DRISDOL [Suspect]
     Dosage: DOSE: FOR 3 WEEKS
     Route: 048
     Dates: start: 20110606
  4. DRISDOL [Suspect]
     Indication: FIBROMYALGIA
     Dosage: DOSE: FOR 3 WEEKS
     Route: 048
     Dates: start: 20110606

REACTIONS (10)
  - FATIGUE [None]
  - NOCTURIA [None]
  - AMNESIA [None]
  - CONSTIPATION [None]
  - DYSPNOEA [None]
  - PAIN [None]
  - HEADACHE [None]
  - RESPIRATORY TRACT IRRITATION [None]
  - CONTUSION [None]
  - SLEEP DISORDER [None]
